FAERS Safety Report 6751036-7 (Version None)
Quarter: 2010Q2

REPORT INFORMATION
  Report Type: 
  Country: None (occurrence: None)
  Receive Date: 20100526
  Receipt Date: 20100401
  Transmission Date: 20101027
  Serious: No
  Sender: FDA-Public Use
  Company Number: 305713

PATIENT
  Age: 33 Year
  Sex: Female

DRUGS (2)
  1. VICTOZA [Suspect]
     Indication: INSULIN-REQUIRING TYPE 2 DIABETES MELLITUS
     Dosage: 0.6 MG, SUBCUTANEOUS; 1.2 MG, SUBCUTANEOUS
     Route: 058
     Dates: start: 20100310, end: 20100313
  2. VICTOZA [Suspect]
     Indication: INSULIN-REQUIRING TYPE 2 DIABETES MELLITUS
     Dosage: 0.6 MG, SUBCUTANEOUS; 1.2 MG, SUBCUTANEOUS
     Route: 058
     Dates: start: 20100313

REACTIONS (1)
  - DRUG INEFFECTIVE [None]
